FAERS Safety Report 11977166 (Version 1)
Quarter: 2016Q1

REPORT INFORMATION
  Report Type: Spontaneous
  Country: US (occurrence: None)
  Receive Date: 20160128
  Receipt Date: 20160128
  Transmission Date: 20160526
  Serious: Yes (Other)
  Sender: FDA-Public Use
  Company Number: None

PATIENT
  Age: 80 Year
  Sex: Female
  Weight: 56.7 kg

DRUGS (4)
  1. BETA BLOCKER [Concomitant]
     Active Substance: UNSPECIFIED INGREDIENT
  2. MUCINEX [Suspect]
     Active Substance: GUAIFENESIN
     Indication: RESPIRATORY TRACT CONGESTION
     Dosage: 1 PILL ONCE DAILY TAKEN BY MOUTH
     Route: 048
  3. CALCIUM PILLS [Concomitant]
  4. CENTRUM VITAMINS LIQUID [Concomitant]
     Active Substance: VITAMINS

REACTIONS (1)
  - Aggression [None]

NARRATIVE: CASE EVENT DATE: 20150126
